FAERS Safety Report 16486372 (Version 1)
Quarter: 2019Q2

REPORT INFORMATION
  Report Type: Spontaneous
  Country: CA (occurrence: CA)
  Receive Date: 20190627
  Receipt Date: 20190627
  Transmission Date: 20190711
  Serious: Yes (Hospitalization)
  Sender: FDA-Public Use
  Company Number: CA-TEVA-2019-CA-1067856

PATIENT
  Age: 62 Year
  Sex: Female

DRUGS (4)
  1. BRILINTA [Concomitant]
     Active Substance: TICAGRELOR
     Route: 065
  2. PRADAX [Suspect]
     Active Substance: DABIGATRAN ETEXILATE MESYLATE
     Indication: ATRIAL FIBRILLATION
     Route: 065
  3. AMIODARONE HYDROCHLORIDE. [Suspect]
     Active Substance: AMIODARONE HYDROCHLORIDE
     Indication: PRODUCT USED FOR UNKNOWN INDICATION
     Route: 065
  4. ASPIRIN(ACETYLSALICYLIC ACID] [Concomitant]
     Route: 065

REACTIONS (4)
  - Fibroma [Recovered/Resolved]
  - Haemorrhage [Recovered/Resolved]
  - Menorrhagia [Recovered/Resolved]
  - Uterine leiomyoma [Recovered/Resolved]
